FAERS Safety Report 7101273-7 (Version None)
Quarter: 2010Q4

REPORT INFORMATION
  Report Type: 
  Country: None (occurrence: None)
  Receive Date: 20101115
  Receipt Date: 20091210
  Transmission Date: 20110411
  Serious: No
  Sender: FDA-Public Use
  Company Number: US-PFIZER INC-2009272019

PATIENT
  Sex: Female

DRUGS (2)
  1. CLINDAMYCIN PHOSPHATE [Suspect]
     Indication: ACNE
     Dosage: UNK
     Route: 061
     Dates: start: 20090817
  2. CLINDAMYCIN PHOSPHATE [Suspect]
     Indication: MILIA

REACTIONS (3)
  - ERYTHEMA [None]
  - SKIN DISCOLOURATION [None]
  - SKIN FISSURES [None]
